FAERS Safety Report 14789247 (Version 1)
Quarter: 2018Q2

REPORT INFORMATION
  Report Type: Report from Study
  Country: CO (occurrence: CO)
  Receive Date: 20180423
  Receipt Date: 20180423
  Transmission Date: 20180711
  Serious: Yes (Hospitalization)
  Sender: FDA-Public Use
  Company Number: PHHY2018CO066185

PATIENT
  Age: 14 Year
  Sex: Male
  Weight: 36 kg

DRUGS (2)
  1. OMNITROPE [Suspect]
     Active Substance: SOMATROPIN
     Indication: GROWTH HORMONE DEFICIENCY
     Dosage: 1.8 MG, QD
     Route: 058
     Dates: start: 20180221
  2. OMNITROPE [Suspect]
     Active Substance: SOMATROPIN
     Dosage: 0.8 MG, UNK
     Route: 058
     Dates: start: 20180221

REACTIONS (7)
  - Incorrect dosage administered [Unknown]
  - Asthma [Unknown]
  - Dyspnoea [Recovered/Resolved with Sequelae]
  - Injection site pain [Recovering/Resolving]
  - Wrong technique in product usage process [Unknown]
  - Injection site swelling [Recovering/Resolving]
  - Drug ineffective [Unknown]

NARRATIVE: CASE EVENT DATE: 20180221
